FAERS Safety Report 6370294-4 (Version None)
Quarter: 2009Q3

REPORT INFORMATION
  Report Type: 
  Country: None (occurrence: None)
  Receive Date: 20090923
  Receipt Date: 20090909
  Transmission Date: 20100115
  Serious: Yes (Death)
  Sender: FDA-Public Use
  Company Number: KR-PFIZER INC-2009250581

PATIENT
  Age: 66 Year

DRUGS (6)
  1. VORICONAZOLE [Suspect]
     Indication: ASPERGILLOSIS
     Dosage: 250 MG, 2X/DAY
     Route: 042
     Dates: start: 20081010, end: 20081101
  2. LOPERAMIDE HYDROCHLORIDE [Concomitant]
     Route: 048
     Dates: start: 20081001, end: 20081029
  3. POTASSIUM CHLORIDE [Concomitant]
     Indication: HYPOKALAEMIA
     Dosage: UNK
     Route: 048
     Dates: start: 20080927, end: 20081019
  4. VANCOMYCIN [Concomitant]
     Indication: PNEUMONIA
     Dosage: UNK
     Route: 042
     Dates: start: 20080922, end: 20081017
  5. SEPTRIN [Concomitant]
     Indication: PNEUMONIA
     Dosage: UNK
     Route: 048
     Dates: start: 20081010, end: 20081101
  6. MEROPEN [Concomitant]
     Indication: PNEUMONIA
     Dosage: UNK
     Route: 042
     Dates: start: 20080922, end: 20081102

REACTIONS (3)
  - ENTEROCOCCAL SEPSIS [None]
  - PNEUMONIA [None]
  - SEPSIS [None]
